FAERS Safety Report 24946058 (Version 3)
Quarter: 2025Q1

REPORT INFORMATION
  Report Type: Spontaneous
  Country: US (occurrence: US)
  Receive Date: 20250210
  Receipt Date: 20250326
  Transmission Date: 20250409
  Serious: Yes (Hospitalization)
  Sender: BIOGEN
  Company Number: US-BIOGEN-2025BI01299543

PATIENT
  Sex: Female

DRUGS (1)
  1. TYSABRI [Suspect]
     Active Substance: NATALIZUMAB
     Indication: Multiple sclerosis
     Route: 050
     Dates: start: 20211007, end: 20240419

REACTIONS (4)
  - Sepsis [Recovered/Resolved]
  - Infection [Unknown]
  - Immunodeficiency [Unknown]
  - Muscular weakness [Not Recovered/Not Resolved]
